FAERS Safety Report 4693512-7 (Version None)
Quarter: 2005Q2

REPORT INFORMATION
  Report Type: 
  Country: None (occurrence: None)
  Receive Date: 20050615
  Receipt Date: 20050606
  Transmission Date: 20051028
  Serious: Yes (Other)
  Sender: FDA-Public Use
  Company Number: 2005-06-0403

PATIENT
  Age: 13 Year
  Sex: Female

DRUGS (3)
  1. CLARITIN [Suspect]
     Indication: MULTIPLE ALLERGIES
     Dosage: PRN ORAL
     Route: 048
     Dates: start: 20050401, end: 20050507
  2. BENADRYL [Suspect]
     Indication: HYPERSENSITIVITY
     Dosage: PRN ORAL
     Route: 048
     Dates: start: 20050401, end: 20050507
  3. ATIVAN [Concomitant]

REACTIONS (4)
  - CONVERSION DISORDER [None]
  - DYSKINESIA [None]
  - FEELING ABNORMAL [None]
  - TREMOR [None]
